FAERS Safety Report 26074935 (Version 3)
Quarter: 2025Q4

REPORT INFORMATION
  Report Type: Spontaneous
  Country: CA (occurrence: CA)
  Receive Date: 20251121
  Receipt Date: 20251218
  Transmission Date: 20260118
  Serious: Yes (Other)
  Sender: ASTELLAS
  Company Number: CA-ASTELLAS-2025-AER-064180

PATIENT
  Age: 11 Year
  Weight: 65 kg

DRUGS (4)
  1. AMPHOTERICIN B [Suspect]
     Active Substance: AMPHOTERICIN B
     Indication: Pulmonary blastomycosis
     Dosage: INITIALLY TREATED WITH LIPOSOMAL AMPHOTERICIN B, SWITCHED TO AMPHOTERICIN B DEOXYCHOLATE ON DAY 4
     Route: 065
  2. AMPHOTERICIN B DEOXYCHOLATE [Suspect]
     Active Substance: AMPHOTERICIN B DEOXYCHOLATE
     Indication: Pulmonary blastomycosis
     Dosage: INITIALLY TREATED WITH LIPOSOMAL AMPHOTERICIN B, SWITCHED TO AMPHOTERICIN B DEOXYCHOLATE ON DAY 4
     Route: 065
  3. POSACONAZOLE [Suspect]
     Active Substance: POSACONAZOLE
     Indication: Pulmonary blastomycosis
     Route: 042
  4. SPORANOX [Suspect]
     Active Substance: ITRACONAZOLE
     Indication: Pulmonary blastomycosis
     Dosage: ADDED ON DAY 17
     Route: 065

REACTIONS (3)
  - Pulmonary necrosis [Unknown]
  - Haemorrhagic disorder [Unknown]
  - Off label use [Unknown]
